FAERS Safety Report 4642953-2 (Version None)
Quarter: 2005Q2

REPORT INFORMATION
  Report Type: 
  Country: None (occurrence: None)
  Receive Date: 20050422
  Receipt Date: 20050412
  Transmission Date: 20051028
  Serious: Yes (Life-Threatening)
  Sender: FDA-Public Use
  Company Number: GB-ABBOTT-05P-167-0297189-00

PATIENT
  Age: 63 Year
  Sex: Male

DRUGS (7)
  1. WARFARIN SODIUM [Suspect]
     Indication: ATRIAL FIBRILLATION
     Route: 048
     Dates: start: 19960209
  2. ZOTON [Suspect]
     Indication: DYSPEPSIA
     Route: 048
     Dates: start: 20050307
  3. ZOTON [Suspect]
     Indication: GASTRITIS
  4. ZOTON [Suspect]
     Indication: NAUSEA
  5. ZOTON [Suspect]
     Indication: DIARRHOEA
  6. AMIODARONE [Concomitant]
     Indication: ATRIAL FIBRILLATION
     Route: 048
     Dates: start: 19960229
  7. AMLODIPINE [Concomitant]
     Indication: HYPERTENSION
     Route: 048
     Dates: start: 19960229

REACTIONS (1)
  - INTERNATIONAL NORMALISED RATIO INCREASED [None]
